FAERS Safety Report 7731185-7 (Version None)
Quarter: 2011Q3

REPORT INFORMATION
  Report Type: 
  Country: None (occurrence: None)
  Receive Date: 20110906
  Receipt Date: 20110829
  Transmission Date: 20111222
  Serious: Yes (Other)
  Sender: FDA-Public Use
  Company Number: PHHY2011GB77567

PATIENT
  Age: 80 Year
  Sex: Male

DRUGS (3)
  1. PREDNISONE [Suspect]
     Indication: POLYMYOSITIS
     Dosage: 60 MG, QD
  2. PREDNISONE [Suspect]
     Dosage: 5 MG, QD
  3. PREDNISONE [Suspect]
     Dosage: 10 MG, QD

REACTIONS (3)
  - MUSCULAR WEAKNESS [None]
  - PARALYSIS [None]
  - MOBILITY DECREASED [None]
